FAERS Safety Report 6348380-4 (Version None)
Quarter: 2009Q3

REPORT INFORMATION
  Report Type: 
  Country: None (occurrence: None)
  Receive Date: 20090908
  Receipt Date: 20090902
  Transmission Date: 20100115
  Serious: Yes (Other)
  Sender: FDA-Public Use
  Company Number: A0805606A

PATIENT
  Age: 52 Year
  Sex: Female

DRUGS (1)
  1. ASPIRIN + CAFFEINE + SALICYLAMIDE POWDER (ASPIRIN+CAFFEINE+SALICYLA) [Suspect]
     Indication: HEADACHE
     Dosage: ORAL
     Route: 048

REACTIONS (5)
  - CHILLS [None]
  - CHOKING [None]
  - DRUG DEPENDENCE [None]
  - PRODUCT SOLUBILITY ABNORMAL [None]
  - PRODUCT TASTE ABNORMAL [None]
